FAERS Safety Report 5075701-5 (Version None)
Quarter: 2006Q3

REPORT INFORMATION
  Report Type: 
  Country: None (occurrence: None)
  Receive Date: 20060807
  Receipt Date: 20060523
  Transmission Date: 20061208
  Serious: Yes (Death)
  Sender: FDA-Public Use
  Company Number: 2458

PATIENT
  Age: 11 Year
  Sex: Male
  Weight: 53 kg

DRUGS (5)
  1. AMNESTEEM [Suspect]
     Indication: NEUROBLASTOMA
     Dosage: 100 MG PO BID
     Dates: start: 20060308, end: 20060318
  2. FENTANYL PCA [Concomitant]
  3. MIRALAX [Concomitant]
  4. ZOFRAN [Concomitant]
  5. MORPHINE [Concomitant]

REACTIONS (6)
  - BACTERAEMIA [None]
  - HYPOTENSION [None]
  - OEDEMA PERIPHERAL [None]
  - RESPIRATORY DISTRESS [None]
  - SCROTAL SWELLING [None]
  - SEPSIS [None]
